FAERS Safety Report 5527618-7 (Version None)
Quarter: 2007Q4

REPORT INFORMATION
  Report Type: 
  Country: None (occurrence: None)
  Receive Date: 20071121
  Receipt Date: 20071108
  Transmission Date: 20080405
  Serious: Yes (Hospitalization)
  Sender: FDA-Public Use
  Company Number: 2007S1000366

PATIENT
  Age: 68 Year
  Sex: Male
  Weight: 36.7414 kg

DRUGS (19)
  1. CUBICIN [Suspect]
     Indication: OSTEOMYELITIS
     Dosage: 6.2 MG/KG; Q24H; IV
     Route: 042
     Dates: start: 20070807, end: 20070912
  2. CUBICIN [Suspect]
     Indication: STAPHYLOCOCCAL INFECTION
     Dosage: 6.2 MG/KG; Q24H; IV
     Route: 042
     Dates: start: 20070807, end: 20070912
  3. LOPRESSOR [Concomitant]
  4. ALLOPURINOL [Concomitant]
  5. PROTONIX /01263202/ [Concomitant]
  6. ZESTRIL [Concomitant]
  7. MS CONTIN [Concomitant]
  8. INSULIN [Concomitant]
  9. LOVENOX [Concomitant]
  10. PERCOCET [Concomitant]
  11. MAGNESIUM SULFATE [Concomitant]
  12. POTASSIUM CHLORIDE [Concomitant]
  13. COLACE [Concomitant]
  14. MIRALAX [Concomitant]
  15. IRON [Concomitant]
  16. DIPHENHYDRAMINE [Concomitant]
  17. TYLENOL [Concomitant]
  18. VANCOMYCIN [Concomitant]
  19. RIFAMPIN [Concomitant]

REACTIONS (2)
  - EOSINOPHIL COUNT INCREASED [None]
  - INTERSTITIAL LUNG DISEASE [None]
